FAERS Safety Report 12159515 (Version 4)
Quarter: 2016Q1

REPORT INFORMATION
  Report Type: Spontaneous
  Country: IT (occurrence: IT)
  Receive Date: 20160308
  Receipt Date: 20160318
  Transmission Date: 20160526
  Serious: Yes (Hospitalization, Other)
  Sender: FDA-Public Use
  Company Number: IT-PFIZER INC-2016131722

PATIENT
  Age: 53 Year
  Sex: Female
  Weight: 70 kg

DRUGS (14)
  1. TRIATEC [Suspect]
     Active Substance: RAMIPRIL
     Indication: INTENTIONAL OVERDOSE
     Dosage: 40 MG, (TOTAL)
     Route: 048
     Dates: start: 20160214, end: 20160214
  2. OLANZAPINE. [Suspect]
     Active Substance: OLANZAPINE
     Indication: BIPOLAR DISORDER
  3. HALDOL [Suspect]
     Active Substance: HALOPERIDOL
     Indication: INTENTIONAL OVERDOSE
  4. HALDOL [Suspect]
     Active Substance: HALOPERIDOL
     Indication: BIPOLAR DISORDER
  5. LORAZEPAM. [Suspect]
     Active Substance: LORAZEPAM
     Indication: BIPOLAR DISORDER
  6. TRIATEC [Suspect]
     Active Substance: RAMIPRIL
     Indication: BIPOLAR DISORDER
  7. BROMAZEPAM [Suspect]
     Active Substance: BROMAZEPAM
     Indication: BIPOLAR DISORDER
  8. HALDOL [Suspect]
     Active Substance: HALOPERIDOL
     Indication: MENTAL DISORDER
     Dosage: 30 ML, (TOTAL)
     Route: 048
     Dates: start: 20160214, end: 20160214
  9. OLANZAPINE. [Suspect]
     Active Substance: OLANZAPINE
     Indication: INTENTIONAL OVERDOSE
     Dosage: 140 MG, (TOTAL)
     Route: 048
     Dates: start: 20160214, end: 20160214
  10. BROMAZEPAM [Suspect]
     Active Substance: BROMAZEPAM
     Indication: INTENTIONAL OVERDOSE
     Dosage: 2.5 MG/ML DROPS AT A DOSE OF 40 ML TOTAL
     Route: 048
     Dates: start: 20160214, end: 20160214
  11. LERCADIP [Suspect]
     Active Substance: LERCANIDIPINE HYDROCHLORIDE
     Indication: INTENTIONAL OVERDOSE
     Dosage: 300 MG, (TOTAL)
     Route: 048
     Dates: start: 20160214, end: 20160214
  12. LORAZEPAM. [Suspect]
     Active Substance: LORAZEPAM
     Indication: INTENTIONAL OVERDOSE
     Dosage: 50 MG, (TOTAL)
     Route: 048
     Dates: start: 20160214, end: 20160214
  13. LORAZEPAM. [Suspect]
     Active Substance: LORAZEPAM
     Indication: PSYCHOTIC DISORDER
  14. LERCADIP [Suspect]
     Active Substance: LERCANIDIPINE HYDROCHLORIDE
     Indication: BIPOLAR DISORDER

REACTIONS (4)
  - Coma [Recovered/Resolved]
  - Hypotension [Recovered/Resolved]
  - Intentional overdose [Unknown]
  - Self injurious behaviour [Recovered/Resolved]

NARRATIVE: CASE EVENT DATE: 20160214
